FAERS Safety Report 4555382-7 (Version None)
Quarter: 2005Q1

REPORT INFORMATION
  Report Type: 
  Country: None (occurrence: None)
  Receive Date: 20050118
  Receipt Date: 20050118
  Transmission Date: 20050727
  Serious: Yes (Other)
  Sender: FDA-Public Use
  Company Number: None

PATIENT
  Age: 39 Year
  Sex: Female
  Weight: 87.0906 kg

DRUGS (1)
  1. DEPO-PROVERA [Suspect]
     Dosage: 1 SHOT  EVERY 3 MONTHS INTRAMUSCULAR
     Route: 030

REACTIONS (8)
  - ABDOMINAL DISTENSION [None]
  - AMNESIA [None]
  - FATIGUE [None]
  - FEELING ABNORMAL [None]
  - MUSCULOSKELETAL STIFFNESS [None]
  - PAIN [None]
  - VISION BLURRED [None]
  - WEIGHT INCREASED [None]
